FAERS Safety Report 25410197 (Version 2)
Quarter: 2025Q3

REPORT INFORMATION
  Report Type: Spontaneous
  Country: US (occurrence: US)
  Receive Date: 20250608
  Receipt Date: 20250825
  Transmission Date: 20251020
  Serious: No
  Sender: SANOFI AVENTIS
  Company Number: US-SA-2025SA159178

PATIENT
  Sex: Male

DRUGS (1)
  1. DUPIXENT [Suspect]
     Active Substance: DUPILUMAB
     Dosage: 200 MG, Q4W
     Route: 058

REACTIONS (7)
  - Ear infection [Unknown]
  - Injection site mass [Unknown]
  - Illness [Unknown]
  - Condition aggravated [Unknown]
  - Dry skin [Unknown]
  - Erythema [Unknown]
  - Skin exfoliation [Unknown]
